FAERS Safety Report 17988593 (Version 1)
Quarter: 2020Q3

REPORT INFORMATION
  Report Type: Spontaneous
  Country: US (occurrence: US)
  Receive Date: 20200706
  Receipt Date: 20200706
  Transmission Date: 20201103
  Serious: No
  Sender: FDA-Public Use
  Company Number: None

PATIENT
  Age: 49 Year
  Sex: Female
  Weight: 68.4 kg

DRUGS (5)
  1. LEVOXYL 112 MCG [Concomitant]
  2. VITAMIN B COMPLEX [Concomitant]
     Active Substance: CYANOCOBALAMIN\DEXPANTHENOL\NIACINAMIDE\PYRIDOXINE HYDROCHLORIDE\RIBOFLAVIN 5^-PHOSPHATE SODIUM\THIAMINE HYDROCHLORIDE\VITAMIN B COMPLEX
  3. VITRON C [Concomitant]
     Active Substance: ASCORBIC ACID\IRON
  4. MULTIVITAMIN [Concomitant]
     Active Substance: VITAMINS
  5. POLYMYXIN B SULFATE AND TRIMETHOPRIM OPHTHALMIC SOLUTION, USP [Suspect]
     Active Substance: POLYMYXIN B SULFATE\TRIMETHOPRIM SULFATE
     Indication: EYE INFECTION
     Dosage: ?          QUANTITY:1 DROP(S);?
     Route: 047
     Dates: start: 20200703, end: 20200705

REACTIONS (3)
  - Eye irritation [None]
  - Eye pruritus [None]
  - Adverse drug reaction [None]

NARRATIVE: CASE EVENT DATE: 20200705
